FAERS Safety Report 8830909 (Version 1)
Quarter: 2012Q4

REPORT INFORMATION
  Report Type: 
  Country: US (occurrence: US)
  Receive Date: 20121009
  Receipt Date: 20121009
  Transmission Date: 20130627
  Serious: No
  Sender: FDA-Public Use
  Company Number: US-PFIZER INC-2012249521

PATIENT
  Sex: Female

DRUGS (6)
  1. LYRICA [Suspect]
     Indication: FIBROMYALGIA
     Dosage: 300 mg, 1x/day
     Route: 048
     Dates: start: 2009
  2. LYRICA [Suspect]
     Indication: NERVE INJURY
     Dosage: 300 mg, UNK
     Route: 048
  3. LYRICA [Suspect]
     Indication: INTERVERTEBRAL DISC DEGENERATION
     Dosage: 300 mg, 2x/day
     Route: 048
  4. LYRICA [Suspect]
     Dosage: 300 mg, 3x/day
     Route: 048
  5. LYRICA [Suspect]
     Dosage: 300 mg, 4x/day
     Route: 048
  6. LYRICA [Suspect]
     Dosage: 300 mg, 3x/day
     Route: 048

REACTIONS (2)
  - Eczema [Not Recovered/Not Resolved]
  - Dry skin [Not Recovered/Not Resolved]
